FAERS Safety Report 10204768 (Version 1)
Quarter: 2014Q2

REPORT INFORMATION
  Report Type: Spontaneous
  Country: SG (occurrence: None)
  Receive Date: 20140527
  Receipt Date: 20140527
  Transmission Date: 20141212
  Serious: Yes (Other)
  Sender: FDA-Public Use
  Company Number: SYM-2014-21081

PATIENT
  Sex: Female

DRUGS (2)
  1. FLAGYL [Suspect]
     Indication: BACTERIAL INFECTION
  2. FLAGYL [Suspect]
     Indication: HELICOBACTER INFECTION

REACTIONS (2)
  - Nausea [None]
  - Vomiting [None]
